FAERS Safety Report 23798330 (Version 3)
Quarter: 2025Q1

REPORT INFORMATION
  Report Type: Report from Study
  Country: CA (occurrence: CA)
  Receive Date: 20240430
  Receipt Date: 20250116
  Transmission Date: 20250409
  Serious: Yes (Hospitalization)
  Sender: SANDOZ
  Company Number: CA-SANDOZ-SDZ2024CA043844

PATIENT
  Sex: Female

DRUGS (2)
  1. HYRIMOZ [Suspect]
     Active Substance: ADALIMUMAB-ADAZ
     Dosage: 40 MG, QW (PRE-FILLED SYRINGE)
     Route: 058
     Dates: start: 20240414
  2. HYRIMOZ [Suspect]
     Active Substance: ADALIMUMAB-ADAZ
     Indication: Psoriasis
     Dosage: 40MG WEEKLY X 5 WEEKS (PRE-FILLED PEN)
     Route: 058
     Dates: start: 20240414

REACTIONS (5)
  - Inflammation [Unknown]
  - Disease progression [Unknown]
  - Stress [Unknown]
  - Therapy cessation [Unknown]
  - Drug ineffective [Unknown]
